FAERS Safety Report 18397518 (Version 3)
Quarter: 2020Q4

REPORT INFORMATION
  Report Type: Report from Study
  Country: GB (occurrence: GB)
  Receive Date: 20201019
  Receipt Date: 20201127
  Transmission Date: 20210114
  Serious: Yes (Hospitalization, Other)
  Sender: FDA-Public Use
  Company Number: GB-AMGEN-GBRSP2020168935

PATIENT
  Age: 25 Year
  Sex: Female

DRUGS (3)
  1. AIMOVIG [Suspect]
     Active Substance: ERENUMAB-AOOE
     Dosage: UNK
     Route: 065
     Dates: start: 20201014
  2. AIMOVIG [Suspect]
     Active Substance: ERENUMAB-AOOE
     Indication: MIGRAINE
     Dosage: 140 MG, Q4W
     Route: 065
     Dates: start: 20200923
  3. BISOPROLOL FUMARATE. [Concomitant]
     Active Substance: BISOPROLOL FUMARATE
     Indication: PRODUCT USED FOR UNKNOWN INDICATION
     Dosage: UNK
     Route: 065

REACTIONS (11)
  - Tremor [Unknown]
  - Nausea [Not Recovered/Not Resolved]
  - Aphasia [Unknown]
  - Migraine [Unknown]
  - Feeling abnormal [Unknown]
  - Hypoaesthesia [Unknown]
  - Dizziness [Unknown]
  - Memory impairment [Unknown]
  - Confusional state [Unknown]
  - Blindness [Unknown]
  - Movement disorder [Unknown]

NARRATIVE: CASE EVENT DATE: 20201007
